FAERS Safety Report 4536144-3 (Version None)
Quarter: 2004Q4

REPORT INFORMATION
  Report Type: 
  Country: None (occurrence: None)
  Receive Date: 20041214
  Receipt Date: 20030916
  Transmission Date: 20050328
  Serious: Yes (Hospitalization)
  Sender: FDA-Public Use
  Company Number: DYR20030001

PATIENT
  Age: 66 Year
  Sex: Female
  Weight: 95.709 kg

DRUGS (6)
  1. ZESTRIL [Suspect]
     Indication: HYPERTENSION
     Dates: end: 20030825
  2. DYRENIUM [Suspect]
     Indication: HYPERTENSION
     Dates: end: 20030825
  3. SYNTHROID [Concomitant]
  4. PRILOSEC [Concomitant]
  5. ZETIA [Concomitant]
  6. ALLOPURINOL [Concomitant]

REACTIONS (2)
  - HYPOTENSION [None]
  - UNEVALUABLE EVENT [None]
